FAERS Safety Report 7765358-4 (Version None)
Quarter: 2011Q3

REPORT INFORMATION
  Report Type: 
  Country: None (occurrence: None)
  Receive Date: 20110921
  Receipt Date: 20110916
  Transmission Date: 20111222
  Serious: Yes (Other)
  Sender: FDA-Public Use
  Company Number: CHPA2011US12682

PATIENT
  Age: 74 Year
  Sex: Female

DRUGS (15)
  1. PROZAC [Concomitant]
     Dosage: 20 MG, QD
  2. CALCIUM CARBONATE [Concomitant]
     Dosage: 1200 MG, UNK
  3. SYNTHROID [Concomitant]
     Dosage: 25 MG, UNK
  4. ASPIRIN [Concomitant]
     Dosage: 1 DF, QD
  5. VITAMIN E [Concomitant]
     Dosage: 400 MG, QD
  6. VITAMIN D [Concomitant]
     Dosage: 1000 MG, QD
  7. VITAMIN B-12 [Concomitant]
  8. ANTIHYPERTENSIVE DRUGS [Concomitant]
     Indication: HYPERTENSION
     Dosage: 5 MG, UNK
  9. COMBIGAN [Concomitant]
     Dosage: 5 MG, BID
  10. PERDIEM OVERNIGHT RELIEF PILLS [Suspect]
     Indication: FUNCTIONAL GASTROINTESTINAL DISORDER
     Dosage: 2 DF, QD
     Route: 048
  11. AMBIEN [Concomitant]
     Dosage: 2.5 MG, QHS
  12. NEXIUM [Concomitant]
     Dosage: 20 MG, QD
  13. TYLENOL W/ CODEINE NO. 3 [Concomitant]
     Dosage: 3 DF, QD
  14. AZOPT [Concomitant]
     Dosage: UNK
  15. LUMIGAN [Concomitant]
     Dosage: 1 DF, QHS

REACTIONS (3)
  - OFF LABEL USE [None]
  - MACULAR DEGENERATION [None]
  - INCORRECT DRUG ADMINISTRATION DURATION [None]
